FAERS Safety Report 10244378 (Version 1)
Quarter: 2014Q1

REPORT INFORMATION
  Report Type: Spontaneous
  Country: US (occurrence: None)
  Receive Date: 20140306
  Receipt Date: 20140306
  Transmission Date: 20141002
  Serious: Yes (Other)
  Sender: FDA-Public Use
  Company Number: 163-21880-13101289

PATIENT
  Age: 68 Year
  Sex: Male

DRUGS (7)
  1. REVLIMID (LENALIDOMIDE) (5 MILLIGRAM, CAPSULES) [Suspect]
     Indication: MYELODYSPLASTIC SYNDROME
     Dosage: 5 MG, 28 IN 28 D, PO
     Route: 048
     Dates: start: 20130918
  2. WELLBUTRIN SR (BUPROPION) (UNKNOWN) [Concomitant]
  3. VERAPAMIL HCL (VERAPAMIL HYDROCHLORIDE) (UNKNOWN) [Concomitant]
  4. VASOTEC (ENALAPRIL MALEATE) (UNKNOWN) [Concomitant]
  5. LITHIUM CARBONATE (LITHIUM CARBONATE) (UNKNOWN) [Concomitant]
  6. NOVOLOG MIX (INSULIN ASPART) (UNKNOWN) [Concomitant]
  7. METFORMIN HCL (METFORMIN HYDROCHLORIDE) (UNKNOWN) [Concomitant]

REACTIONS (5)
  - Full blood count decreased [None]
  - Fatigue [None]
  - Skin haemorrhage [None]
  - Diarrhoea [None]
  - Rash [None]
